FAERS Safety Report 4581073-2 (Version None)
Quarter: 2005Q1

REPORT INFORMATION
  Report Type: 
  Country: None (occurrence: None)
  Receive Date: 20050214
  Receipt Date: 20040730
  Transmission Date: 20050727
  Serious: Yes (Other)
  Sender: FDA-Public Use
  Company Number: US-GLAXOSMITHKLINE-A0520400A

PATIENT
  Sex: Female

DRUGS (3)
  1. LAMICTAL [Suspect]
     Indication: BIPOLAR DISORDER
     Route: 048
     Dates: end: 20040716
  2. ZYPREXA [Concomitant]
  3. KLONOPIN [Concomitant]

REACTIONS (2)
  - ARTHRALGIA [None]
  - LIVER FUNCTION TEST ABNORMAL [None]
